FAERS Safety Report 5632239-1 (Version None)
Quarter: 2008Q1

REPORT INFORMATION
  Report Type: 
  Country: None (occurrence: None)
  Receive Date: 20080220
  Receipt Date: 20080211
  Transmission Date: 20080703
  Serious: Yes (Disabling)
  Sender: FDA-Public Use
  Company Number: DE-SANOFI-SYNTHELABO-A04200800163

PATIENT
  Sex: Male

DRUGS (1)
  1. PLAVIX [Suspect]
     Indication: STENT PLACEMENT
     Dosage: UNK
     Route: 048

REACTIONS (5)
  - ACUTE STRESS DISORDER [None]
  - CEREBRAL DISORDER [None]
  - CONSTIPATION [None]
  - FEAR OF DEATH [None]
  - RENAL PAIN [None]
